FAERS Safety Report 17929101 (Version 8)
Quarter: 2022Q2

REPORT INFORMATION
  Report Type: Spontaneous
  Country: JP (occurrence: JP)
  Receive Date: 20200623
  Receipt Date: 20220406
  Transmission Date: 20220721
  Serious: Yes (Hospitalization)
  Sender: FDA-Public Use
  Company Number: JP-ELI_LILLY_AND_COMPANY-JP202006007521

PATIENT
  Age: 43 Year
  Sex: Female
  Weight: 49 kg

DRUGS (38)
  1. ADCIRCA [Suspect]
     Active Substance: TADALAFIL
     Indication: Pulmonary arterial hypertension
     Dosage: 40 MG, DAILY
     Route: 065
  2. ADCIRCA [Suspect]
     Active Substance: TADALAFIL
     Indication: Pulmonary hypertension
  3. UPTRAVI [Suspect]
     Active Substance: SELEXIPAG
     Indication: Pulmonary arterial hypertension
     Dosage: 0.4 MG, DAILY
     Route: 048
     Dates: start: 20180131, end: 20180204
  4. UPTRAVI [Suspect]
     Active Substance: SELEXIPAG
     Indication: Pulmonary hypertension
     Dosage: 0.8 MG, DAILY
     Route: 048
     Dates: start: 20180205, end: 20180326
  5. UPTRAVI [Suspect]
     Active Substance: SELEXIPAG
     Dosage: 1 MG, DAILY
     Route: 048
     Dates: start: 20180327, end: 20180424
  6. UPTRAVI [Suspect]
     Active Substance: SELEXIPAG
     Dosage: 1.2 MG, (0.3 MG X 4 TIMES PER DAY)
     Route: 048
     Dates: start: 20180425, end: 20180613
  7. UPTRAVI [Suspect]
     Active Substance: SELEXIPAG
     Dosage: 1.4 MG, DAILY
     Route: 048
     Dates: start: 20180614, end: 20180904
  8. UPTRAVI [Suspect]
     Active Substance: SELEXIPAG
     Dosage: 1.6 MG, DAILY
     Route: 048
     Dates: start: 20180905, end: 201809
  9. UPTRAVI [Suspect]
     Active Substance: SELEXIPAG
     Dosage: 1.4 MG, DAILY
     Route: 048
     Dates: start: 201809, end: 20181213
  10. UPTRAVI [Suspect]
     Active Substance: SELEXIPAG
     Dosage: 1.6 MG, DAILY
     Route: 048
     Dates: start: 20181214, end: 20190327
  11. UPTRAVI [Suspect]
     Active Substance: SELEXIPAG
     Dosage: 1.8 MG, DAILY
     Route: 048
     Dates: start: 20190328, end: 20190407
  12. UPTRAVI [Suspect]
     Active Substance: SELEXIPAG
     Dosage: 2 MG, DAILY
     Route: 048
     Dates: start: 20190408, end: 20190411
  13. UPTRAVI [Suspect]
     Active Substance: SELEXIPAG
     Dosage: 1.9 MG, DAILY
     Route: 048
     Dates: start: 20190412, end: 20190419
  14. UPTRAVI [Suspect]
     Active Substance: SELEXIPAG
     Dosage: 2 MG, DAILY
     Route: 048
     Dates: start: 20190420, end: 20190514
  15. UPTRAVI [Suspect]
     Active Substance: SELEXIPAG
     Dosage: 2.2 MG, DAILY
     Route: 048
     Dates: start: 20190515, end: 20190709
  16. UPTRAVI [Suspect]
     Active Substance: SELEXIPAG
     Dosage: 2 MG, DAILY
     Route: 048
     Dates: start: 20190710, end: 20190820
  17. UPTRAVI [Suspect]
     Active Substance: SELEXIPAG
     Dosage: 1.8 MG, DAILY
     Route: 048
     Dates: start: 20190821, end: 20190827
  18. UPTRAVI [Suspect]
     Active Substance: SELEXIPAG
     Dosage: 1.6 MG, DAILY
     Route: 048
     Dates: start: 20190828, end: 20200127
  19. OPSUMIT [Concomitant]
     Active Substance: MACITENTAN
     Indication: Pulmonary arterial hypertension
     Dosage: 10 MG, DAILY
     Dates: start: 20160303
  20. OPSUMIT [Concomitant]
     Active Substance: MACITENTAN
     Indication: Pulmonary arterial hypertension
  21. NEXIUM [Concomitant]
     Active Substance: ESOMEPRAZOLE MAGNESIUM
     Indication: Product used for unknown indication
     Dosage: 20 MG, DAILY
  22. POTASSIUM ASPARTATE [Concomitant]
     Active Substance: POTASSIUM ASPARTATE
     Indication: Hypokalaemia
     Dosage: 300 MG, DAILY
     Dates: start: 201801, end: 20180725
  23. FUROSEMIDE [Concomitant]
     Active Substance: FUROSEMIDE
     Indication: Cardiac failure
     Dosage: 40 MG, DAILY
     Dates: start: 201801, end: 20180731
  24. FUROSEMIDE [Concomitant]
     Active Substance: FUROSEMIDE
     Dosage: 20 MG, DAILY
     Dates: start: 20180801
  25. SPIRONOLACTONE [Concomitant]
     Active Substance: SPIRONOLACTONE
     Indication: Cardiac failure
     Dosage: 50 MG, DAILY
     Dates: start: 201801, end: 20180904
  26. SPIRONOLACTONE [Concomitant]
     Active Substance: SPIRONOLACTONE
     Dosage: 25 MG, DAILY
     Dates: start: 20180905
  27. BIFIDOBACTERIUM SPP. [Concomitant]
     Active Substance: BIFIDOBACTERIUM SPP.
     Indication: Constipation
     Dosage: 3 G, DAILY
     Dates: start: 20180307, end: 20180321
  28. BIFIDOBACTERIUM SPP. [Concomitant]
     Active Substance: BIFIDOBACTERIUM SPP.
     Dosage: UNK
     Dates: start: 20180530
  29. BIFIDOBACTERIUM SPP. [Concomitant]
     Active Substance: BIFIDOBACTERIUM SPP.
     Dosage: UNK
     Dates: start: 20190715, end: 20190719
  30. CELECOXIB [Concomitant]
     Active Substance: CELECOXIB
     Indication: Arthralgia
     Dosage: UNK
     Dates: start: 20180813, end: 20180905
  31. CEFCAPENE PIVOXIL HYDROCHLORIDE [Concomitant]
     Active Substance: CEFCAPENE PIVOXIL HYDROCHLORIDE
     Indication: Product used for unknown indication
     Dosage: UNK
     Dates: start: 20190109
  32. LANSOPRAZOLE [Concomitant]
     Active Substance: LANSOPRAZOLE
     Indication: Prophylaxis
     Dosage: 15 MG, DAILY
  33. CERCINE [Concomitant]
     Active Substance: DIAZEPAM
     Indication: Product used for unknown indication
     Dosage: UNK
     Dates: start: 20190612
  34. MIYABM [Concomitant]
     Indication: Product used for unknown indication
     Dosage: 3 DOSAGE FORM, DAILY
     Dates: start: 201801, end: 20180306
  35. REBAMIPIDE [Concomitant]
     Active Substance: REBAMIPIDE
     Indication: Product used for unknown indication
     Dosage: UNK
     Dates: start: 20180307, end: 20190129
  36. SODIUM FERROUS CITRATE [Concomitant]
     Active Substance: SODIUM FERROUS CITRATE
     Indication: Iron deficiency anaemia
     Dosage: 100 MG, DAILY
     Dates: start: 20180425, end: 20180509
  37. SODIUM FERROUS CITRATE [Concomitant]
     Active Substance: SODIUM FERROUS CITRATE
     Dosage: 50 MG, DAILY
     Dates: start: 20180510, end: 20180530
  38. SODIUM FERROUS CITRATE [Concomitant]
     Active Substance: SODIUM FERROUS CITRATE
     Dosage: 50 MG, DAILY
     Dates: start: 20180725, end: 20180801

REACTIONS (22)
  - Hyperthyroidism [Recovering/Resolving]
  - Haemoptysis [Recovered/Resolved]
  - Haemoptysis [Recovered/Resolved]
  - Pulmonary alveolar haemorrhage [Recovering/Resolving]
  - Hyperthyroidism [Recovering/Resolving]
  - Pulmonary alveolar haemorrhage [Recovering/Resolving]
  - Iron deficiency anaemia [Recovering/Resolving]
  - Arthralgia [Recovering/Resolving]
  - Dental caries [Recovered/Resolved]
  - Arrhythmia [Not Recovered/Not Resolved]
  - Diarrhoea [Recovered/Resolved]
  - Sciatica [Recovering/Resolving]
  - Diarrhoea [Recovering/Resolving]
  - Arthralgia [Recovering/Resolving]
  - Hypotension [Recovered/Resolved]
  - Hypotension [Recovered/Resolved]
  - Headache [Recovering/Resolving]
  - Headache [Recovered/Resolved]
  - Epistaxis [Recovered/Resolved]
  - Pharyngitis [Recovered/Resolved]
  - Nasopharyngitis [Recovering/Resolving]
  - Chest pain [Recovering/Resolving]

NARRATIVE: CASE EVENT DATE: 20180307
